FAERS Safety Report 8831339 (Version 3)
Quarter: 2013Q3

REPORT INFORMATION
  Report Type: Report from Study
  Country: JP (occurrence: JP)
  Receive Date: 20121008
  Receipt Date: 20130916
  Transmission Date: 20140515
  Serious: Yes (Hospitalization, Other)
  Sender: FDA-Public Use
  Company Number: JP-VERTEX PHARMACEUTICAL INC.-AE-2012-009633

PATIENT
  Age: 58 Year
  Sex: Male

DRUGS (18)
  1. VX-950 (TELAPREVIR) [Suspect]
     Indication: CHRONIC HEPATITIS C
     Dosage: 2250 MG, QD
     Route: 048
     Dates: start: 20120326, end: 20120415
  2. VX-950 (TELAPREVIR) [Suspect]
     Dosage: 1500 MG, QD
     Route: 048
     Dates: start: 20120416, end: 20120617
  3. PEGINTRON [Suspect]
     Indication: CHRONIC HEPATITIS C
     Dosage: 1.5 ?G/KG, QW
     Route: 058
     Dates: start: 20120326, end: 20120618
  4. PEGINTRON [Suspect]
     Dosage: 1.5 ?G/KG, QW
     Route: 058
     Dates: start: 20120706, end: 20120718
  5. REBETOL [Suspect]
     Indication: CHRONIC HEPATITIS C
     Dosage: 800 MG, QD
     Route: 048
     Dates: start: 20120326, end: 20120415
  6. REBETOL [Suspect]
     Dosage: 600 MG, QD
     Route: 048
     Dates: start: 20120416, end: 20120430
  7. REBETOL [Suspect]
     Dosage: 400 MG, QD
     Route: 048
     Dates: start: 20120501, end: 20120508
  8. REBETOL [Suspect]
     Dosage: 200 MG, QD
     Route: 048
     Dates: start: 20120509, end: 20120617
  9. REBETOL [Suspect]
     Dosage: 400 MG, QD
     Route: 048
     Dates: start: 20120618, end: 20120622
  10. REBETOL [Suspect]
     Dosage: 200 MG, QD
     Route: 048
     Dates: start: 20120702, end: 20120717
  11. REBETOL [Suspect]
     Dosage: 200 MG, QOD
     Route: 048
     Dates: start: 20120718, end: 20120724
  12. COSPANON [Concomitant]
     Dosage: 480 MG, QD
     Route: 048
  13. ACETAMINOPHEN [Concomitant]
     Dosage: 500 MG, QD, PRN
     Route: 048
     Dates: start: 20120326, end: 20120331
  14. SEROQUEL [Concomitant]
     Dosage: 25 MG, QD
     Route: 048
     Dates: start: 20120401
  15. SEROQUEL [Concomitant]
     Dosage: 25 MG, QD, PRN
     Route: 048
  16. SEROQUEL [Concomitant]
     Dosage: 25 MG, QD
     Route: 048
  17. URSO [Concomitant]
     Dosage: 600 MG, QD
     Route: 048
  18. PRIMPERAN [Concomitant]
     Dosage: 5 MG, QD, PRN
     Route: 048
     Dates: start: 20120509, end: 20120617

REACTIONS (2)
  - Pancreatitis acute [Recovered/Resolved]
  - Anaemia [Recovered/Resolved]
